FAERS Safety Report 5163695-3 (Version None)
Quarter: 2006Q4

REPORT INFORMATION
  Report Type: 
  Country: None (occurrence: None)
  Receive Date: 20061204
  Receipt Date: 20010725
  Transmission Date: 20070319
  Serious: Yes (Life-Threatening)
  Sender: FDA-Public Use
  Company Number: FR-GLAXOSMITHKLINE-B0115495B

PATIENT
  Sex: Female
  Weight: 0.9 kg

DRUGS (14)
  1. RETROVIR [Suspect]
     Indication: ANTIVIRAL PROPHYLAXIS
     Dosage: 1.4MG PER DAY
     Route: 042
  2. EPIVIR [Suspect]
     Indication: HIV INFECTION
     Route: 048
  3. RETROVIR [Suspect]
     Route: 042
     Dates: start: 20010515, end: 20010515
  4. NORVIR [Suspect]
     Indication: HIV INFECTION
     Route: 048
  5. ZERIT [Suspect]
     Indication: HIV INFECTION
     Route: 048
  6. CLAFORAN [Concomitant]
     Route: 065
     Dates: start: 20010515
  7. CLAMOXYL [Concomitant]
     Route: 065
     Dates: start: 20010515
  8. FENTANYL [Concomitant]
     Route: 065
     Dates: start: 20010515
  9. NETROMYCINE [Concomitant]
     Route: 065
     Dates: start: 20010515
  10. CUROSURF [Concomitant]
     Route: 065
     Dates: start: 20010516, end: 20010516
  11. FLAGYL [Concomitant]
     Route: 065
     Dates: start: 20010518, end: 20010520
  12. METHADONE HCL [Concomitant]
     Indication: DRUG WITHDRAWAL MAINTENANCE THERAPY
     Route: 048
  13. URSOLVAN [Concomitant]
     Indication: PRURIGO
     Route: 065
     Dates: start: 20010401
  14. ALCOHOL [Concomitant]
     Route: 048

REACTIONS (19)
  - ABDOMINAL DISTENSION [None]
  - ANAEMIA MACROCYTIC [None]
  - ASCITES [None]
  - BLOOD CREATININE INCREASED [None]
  - BLOOD SODIUM DECREASED [None]
  - CALCINOSIS [None]
  - DILATATION VENTRICULAR [None]
  - DRUG WITHDRAWAL SYNDROME [None]
  - FOETAL GROWTH RETARDATION [None]
  - GASTROINTESTINAL DISORDER [None]
  - HYPERTRIGLYCERIDAEMIA [None]
  - INTRAVENTRICULAR HAEMORRHAGE [None]
  - MECONIUM PERITONITIS [None]
  - NEONATAL INFECTION [None]
  - NEONATAL RESPIRATORY DISTRESS SYNDROME [None]
  - NEUTROPENIA [None]
  - RESTLESSNESS [None]
  - ULTRASOUND ABDOMEN ABNORMAL [None]
  - WEIGHT GAIN POOR [None]
